FAERS Safety Report 4439041-7 (Version None)
Quarter: 2004Q3

REPORT INFORMATION
  Report Type: 
  Country: None (occurrence: None)
  Receive Date: 20040901
  Receipt Date: 20040730
  Transmission Date: 20050211
  Serious: Yes (Other)
  Sender: FDA-Public Use
  Company Number: JP-BRISTOL-MYERS SQUIBB COMPANY-12661195

PATIENT
  Age: 62 Year
  Sex: Male

DRUGS (9)
  1. GATIFLO TABS 100 MG [Suspect]
     Indication: BRONCHOPNEUMONIA
     Route: 048
     Dates: start: 20040724, end: 20040728
  2. LASIX [Concomitant]
     Route: 048
     Dates: start: 20001205
  3. ALDACTONE-A [Concomitant]
     Route: 048
     Dates: start: 20001205
  4. URSO [Concomitant]
     Route: 048
     Dates: start: 19950301
  5. LIVACT [Concomitant]
     Route: 048
     Dates: start: 19960802
  6. PROMAC [Concomitant]
     Route: 048
     Dates: start: 19991214
  7. AMINOLEBAN [Concomitant]
     Route: 048
     Dates: start: 20040603
  8. OMEPRAL [Concomitant]
     Route: 048
     Dates: start: 20021024
  9. LACTULOSE [Concomitant]
     Route: 048
     Dates: start: 20020101

REACTIONS (2)
  - HYPERGLYCAEMIA [None]
  - STOMATITIS [None]
